FAERS Safety Report 17717293 (Version 1)
Quarter: 2020Q2

REPORT INFORMATION
  Report Type: Spontaneous
  Country: US (occurrence: US)
  Receive Date: 20200428
  Receipt Date: 20200428
  Transmission Date: 20200714
  Serious: No
  Sender: FDA-Public Use
  Company Number: US-009507513-2004USA004126

PATIENT
  Sex: Female

DRUGS (2)
  1. KEYTRUDA [Suspect]
     Active Substance: PEMBROLIZUMAB
     Dosage: INJECTION
  2. FENTANYL. [Concomitant]
     Active Substance: FENTANYL
     Dosage: TRANSDERMAL PATCH 25MCG
     Route: 062

REACTIONS (1)
  - Psoriasis [Unknown]
